FAERS Safety Report 8529755-1 (Version None)
Quarter: 2012Q3

REPORT INFORMATION
  Report Type: 
  Country: None (occurrence: None)
  Receive Date: 20120723
  Receipt Date: 20120711
  Transmission Date: 20120928
  Serious: No
  Sender: FDA-Public Use
  Company Number: US-JNJFOC-20120705914

PATIENT
  Sex: Female
  Weight: 49.44 kg

DRUGS (12)
  1. FENTANYL-100 [Suspect]
     Indication: ARTHRITIS
     Route: 062
     Dates: start: 20120101, end: 20120101
  2. FENTANYL-100 [Suspect]
     Indication: FIBROMYALGIA
     Route: 062
     Dates: start: 20120101, end: 20120101
  3. FENTANYL-100 [Suspect]
     Indication: ARTHRITIS
     Dosage: 2004 OR 2005
     Route: 062
  4. DURAGESIC-100 [Suspect]
     Indication: FIBROMYALGIA
     Route: 062
     Dates: start: 20120101
  5. FENTANYL CITRATE [Suspect]
     Indication: ARTHRITIS
     Route: 062
  6. FENTANYL-100 [Suspect]
     Indication: FIBROMYALGIA
     Dosage: 2004 OR 2005
     Route: 062
  7. DURAGESIC-100 [Suspect]
     Route: 062
     Dates: start: 20120101
  8. DURAGESIC-100 [Suspect]
     Indication: ARTHRITIS
     Route: 062
  9. DURAGESIC-100 [Suspect]
     Route: 062
  10. SYNTHROID [Concomitant]
     Indication: THYROID DISORDER
     Route: 048
     Dates: start: 20020101
  11. FENTANYL CITRATE [Suspect]
     Indication: FIBROMYALGIA
     Route: 062
  12. PERCOCET [Concomitant]
     Indication: BREAKTHROUGH PAIN
     Route: 048

REACTIONS (11)
  - ADVERSE EVENT [None]
  - DRUG INEFFECTIVE [None]
  - ABNORMAL LOSS OF WEIGHT [None]
  - PRODUCT QUALITY ISSUE [None]
  - SKIN BURNING SENSATION [None]
  - APPLICATION SITE PHOTOSENSITIVITY REACTION [None]
  - MATERNAL EXPOSURE DURING PREGNANCY [None]
  - APPLICATION SITE EROSION [None]
  - HYPERSENSITIVITY [None]
  - HORMONE LEVEL ABNORMAL [None]
  - WRONG TECHNIQUE IN DRUG USAGE PROCESS [None]
